FAERS Safety Report 10201604 (Version 1)
Quarter: 2014Q2

REPORT INFORMATION
  Report Type: Report from Study
  Country: US (occurrence: US)
  Receive Date: 20140528
  Receipt Date: 20140528
  Transmission Date: 20141212
  Serious: Yes (Hospitalization, Other)
  Sender: FDA-Public Use
  Company Number: US-GILEAD-2014-0103261

PATIENT
  Age: 79 Year
  Sex: Male

DRUGS (4)
  1. BLINDED PLACEBO [Suspect]
     Indication: CARDIAC FAILURE
     Dosage: UNK
     Route: 065
  2. BLINDED RANOLAZINE [Suspect]
     Indication: CARDIAC FAILURE
     Dosage: UNK
     Route: 065
  3. IMDUR [Concomitant]
  4. NITRO                              /00003201/ [Concomitant]
     Route: 060

REACTIONS (2)
  - Myocardial ischaemia [Recovered/Resolved]
  - Acute myocardial infarction [Recovered/Resolved]
